FAERS Safety Report 12072558 (Version 1)
Quarter: 2016Q1

REPORT INFORMATION
  Report Type: Spontaneous
  Country: HR (occurrence: HR)
  Receive Date: 20160212
  Receipt Date: 20160212
  Transmission Date: 20160526
  Serious: Yes (Death, Hospitalization)
  Sender: FDA-Public Use
  Company Number: HR-ACTAVIS-2016-02701

PATIENT
  Sex: Female

DRUGS (5)
  1. DOCETAXEL (UNKNOWN) [Suspect]
     Active Substance: DOCETAXEL
     Indication: PRODUCT USED FOR UNKNOWN INDICATION
     Dosage: 75 MG/M2, UNKNOWN
     Route: 065
     Dates: start: 20151202
  2. PERJETA [Suspect]
     Active Substance: PERTUZUMAB
     Dosage: 420 MG, UNKNOWN (MAINTANANCE DOSE.)
     Route: 065
     Dates: start: 20151202
  3. HERCEPTIN [Suspect]
     Active Substance: TRASTUZUMAB
     Indication: PRODUCT USED FOR UNKNOWN INDICATION
     Dosage: 8 MG/KG, UNKNOWN (LOADING DOSE.)
     Route: 065
     Dates: start: 20151202
  4. PERJETA [Suspect]
     Active Substance: PERTUZUMAB
     Indication: PRODUCT USED FOR UNKNOWN INDICATION
     Dosage: 840 MG, UNKNOWN (LOADING DOSE.)
     Route: 065
     Dates: start: 20151202
  5. HERCEPTIN [Suspect]
     Active Substance: TRASTUZUMAB
     Dosage: 6 MG/KG, UNKNOWN (MAINTANANCE DOSE.)
     Route: 065

REACTIONS (2)
  - Embolism [Fatal]
  - Pathological fracture [Unknown]
